FAERS Safety Report 7380843-5 (Version None)
Quarter: 2011Q1

REPORT INFORMATION
  Report Type: 
  Country: None (occurrence: None)
  Receive Date: 20110329
  Receipt Date: 20110323
  Transmission Date: 20110831
  Serious: Yes (Hospitalization)
  Sender: FDA-Public Use
  Company Number: B0707758A

PATIENT
  Age: 64 Year
  Sex: Female

DRUGS (5)
  1. CEFTRIAXONE SODIUM [Suspect]
     Route: 065
     Dates: start: 20101217, end: 20101217
  2. LASIX [Suspect]
     Route: 065
     Dates: start: 20101218, end: 20101221
  3. CLAMOXYL [Suspect]
     Route: 065
     Dates: start: 20101216, end: 20101216
  4. NEXIUM [Suspect]
     Route: 065
     Dates: start: 20101217, end: 20110126
  5. CIFLOX [Suspect]
     Route: 065
     Dates: start: 20101217, end: 20101226

REACTIONS (6)
  - SINUS TACHYCARDIA [None]
  - SKIN EXFOLIATION [None]
  - DRUG RASH WITH EOSINOPHILIA AND SYSTEMIC SYMPTOMS [None]
  - RASH GENERALISED [None]
  - PRURITUS [None]
  - BURNING SENSATION [None]
